FAERS Safety Report 8369274-9 (Version None)
Quarter: 2012Q2

REPORT INFORMATION
  Report Type: 
  Country: None (occurrence: None)
  Receive Date: 20120518
  Receipt Date: 20120514
  Transmission Date: 20120825
  Serious: Yes (Other)
  Sender: FDA-Public Use
  Company Number: PHHY2012JP042028

PATIENT
  Age: 59 Year
  Sex: Male

DRUGS (9)
  1. SYAKUYAKUKANZOTO [Concomitant]
     Indication: SCIATICA
     Route: 048
  2. TEGRETOL [Suspect]
     Indication: SCIATICA
     Route: 048
  3. RINLAXER [Concomitant]
     Indication: SCIATICA
     Route: 048
  4. NEUROTROPIN [Concomitant]
     Indication: SCIATICA
     Route: 048
  5. VOLTAREN [Suspect]
     Indication: SCIATICA
     Route: 048
  6. VITAMIN B12 [Concomitant]
     Indication: SCIATICA
     Route: 048
  7. TOUKISYAKUYAKUSAN [Concomitant]
     Indication: SCIATICA
  8. MUCOSTA [Concomitant]
     Route: 048
  9. OPALMON [Concomitant]
     Indication: SCIATICA
     Route: 048

REACTIONS (1)
  - DRUG RASH WITH EOSINOPHILIA AND SYSTEMIC SYMPTOMS [None]
